FAERS Safety Report 4636881-6 (Version None)
Quarter: 2005Q2

REPORT INFORMATION
  Report Type: 
  Country: None (occurrence: None)
  Receive Date: 20050415
  Receipt Date: 20050412
  Transmission Date: 20051028
  Serious: Yes (Disabling)
  Sender: FDA-Public Use
  Company Number: US-MERCK-0504USA01782

PATIENT
  Age: 76 Year
  Sex: Female

DRUGS (5)
  1. ZOCOR [Suspect]
     Indication: BLOOD CHOLESTEROL INCREASED
     Route: 048
  2. ZOCOR [Suspect]
     Route: 048
  3. HYDRALAZINE [Concomitant]
     Route: 065
  4. LABETALOL HYDROCHLORIDE [Concomitant]
     Route: 065
  5. TRIAM-A [Concomitant]
     Route: 065

REACTIONS (1)
  - PAIN IN EXTREMITY [None]
